FAERS Safety Report 6767394-3 (Version None)
Quarter: 2010Q2

REPORT INFORMATION
  Report Type: 
  Country: None (occurrence: None)
  Receive Date: 20100614
  Receipt Date: 20100607
  Transmission Date: 20101027
  Serious: Yes (Disabling, Other)
  Sender: FDA-Public Use
  Company Number: CA-ASTRAZENECA-2010SE26384

PATIENT
  Age: 71 Year
  Sex: Female
  Weight: 90.7 kg

DRUGS (6)
  1. CRESTOR [Suspect]
     Route: 048
  2. ASAPHEN [Concomitant]
  3. AVALIDE [Concomitant]
  4. NORVASC [Concomitant]
  5. NOVOLIN GE NPH [Concomitant]
     Dosage: 100 U/ML
     Route: 058
  6. PMS-CITALOPRAM [Concomitant]

REACTIONS (6)
  - ACTIVITIES OF DAILY LIVING IMPAIRED [None]
  - DYSPHAGIA [None]
  - GAIT DISTURBANCE [None]
  - MOBILITY DECREASED [None]
  - MUSCULOSKELETAL PAIN [None]
  - PAIN [None]
